FAERS Safety Report 18453639 (Version 1)
Quarter: 2020Q4

REPORT INFORMATION
  Report Type: Spontaneous
  Country: US (occurrence: US)
  Receive Date: 20201102
  Receipt Date: 20201102
  Transmission Date: 20210114
  Serious: No
  Sender: FDA-Public Use
  Company Number: US-FARMAPROD-202009-1302

PATIENT
  Age: 91 Year
  Sex: Male
  Weight: 68.1 kg

DRUGS (11)
  1. DORZOLAMIDE HCL [Concomitant]
     Active Substance: DORZOLAMIDE HYDROCHLORIDE
  2. DILTIAZEM. [Concomitant]
     Active Substance: DILTIAZEM
     Dosage: DELAY RELEASE CAPSULE
  3. FUROSEMIDE. [Concomitant]
     Active Substance: FUROSEMIDE
  4. ALPHAGAN P [Concomitant]
     Active Substance: BRIMONIDINE TARTRATE
  5. ZINC. [Concomitant]
     Active Substance: ZINC
  6. SYMBICORT [Concomitant]
     Active Substance: BUDESONIDE\FORMOTEROL FUMARATE DIHYDRATE
     Dosage: 160-4.5 MCG PRESSURIZED METERED-DOSE INHALER.
  7. VYZULTA [Concomitant]
     Active Substance: LATANOPROSTENE BUNOD
  8. OXERVATE [Suspect]
     Active Substance: CENEGERMIN-BKBJ
     Indication: NEUROTROPHIC KERATOPATHY
     Route: 047
     Dates: start: 20200921
  9. POTASSIUM [Concomitant]
     Active Substance: POTASSIUM
     Dosage: 595 (95) MG
  10. WARFARIN SODIUM. [Concomitant]
     Active Substance: WARFARIN SODIUM
  11. DIGOXIN. [Concomitant]
     Active Substance: DIGOXIN

REACTIONS (1)
  - Eye pain [Unknown]

NARRATIVE: CASE EVENT DATE: 20200928
